FAERS Safety Report 23261435 (Version 2)
Quarter: 2023Q4

REPORT INFORMATION
  Report Type: Spontaneous
  Country: US (occurrence: US)
  Receive Date: 20231205
  Receipt Date: 20231208
  Transmission Date: 20240110
  Serious: No
  Sender: FDA-Public Use
  Company Number: US-AMGEN-USASP2023216048

PATIENT
  Age: 68 Year
  Sex: Female

DRUGS (4)
  1. REPATHA [Suspect]
     Active Substance: EVOLOCUMAB
     Indication: Iliac artery occlusion
     Dosage: 140 MILLIGRAM, Q2WK
     Route: 065
  2. REPATHA [Suspect]
     Active Substance: EVOLOCUMAB
     Indication: Renal artery stenosis
  3. REPATHA [Suspect]
     Active Substance: EVOLOCUMAB
     Indication: Aortic stenosis
  4. REPATHA [Suspect]
     Active Substance: EVOLOCUMAB
     Indication: Hyperlipidaemia

REACTIONS (4)
  - Device difficult to use [Unknown]
  - Device use error [Unknown]
  - Drug dose omission by device [Unknown]
  - Product label issue [Unknown]

NARRATIVE: CASE EVENT DATE: 20231201
